APPROVED DRUG PRODUCT: LORATADINE
Active Ingredient: LORATADINE
Strength: 10MG
Dosage Form/Route: TABLET, ORALLY DISINTEGRATING;ORAL
Application: A208477 | Product #001
Applicant: AUROBINDO PHARMA LTD
Approved: Apr 11, 2018 | RLD: No | RS: No | Type: OTC